FAERS Safety Report 15360637 (Version 1)
Quarter: 2018Q3

REPORT INFORMATION
  Report Type: Report from Study
  Country: None (occurrence: US)
  Receive Date: 20180907
  Receipt Date: 20180907
  Transmission Date: 20181010
  Serious: No
  Sender: FDA-Public Use
  Company Number: US-BIOVITRUM-2018US0163

PATIENT
  Age: 73 Year
  Sex: Male

DRUGS (10)
  1. LOSARTAN. [Concomitant]
     Active Substance: LOSARTAN
  2. KINERET [Suspect]
     Active Substance: ANAKINRA
     Indication: PERICARDITIS
     Route: 058
     Dates: start: 20171212, end: 20180123
  3. METFORMIN [Concomitant]
     Active Substance: METFORMIN HYDROCHLORIDE
  4. KINERET [Suspect]
     Active Substance: ANAKINRA
     Indication: POLYMYALGIA RHEUMATICA
     Route: 058
     Dates: start: 20180204
  5. GLIPIZIDE. [Concomitant]
     Active Substance: GLIPIZIDE
  6. COLCHICINE. [Concomitant]
     Active Substance: COLCHICINE
  7. JANUVIA [Concomitant]
     Active Substance: SITAGLIPTIN PHOSPHATE
  8. ASPIRINE [Concomitant]
     Active Substance: ASPIRIN
  9. PREDNISONE. [Concomitant]
     Active Substance: PREDNISONE
  10. LIPITOR [Concomitant]
     Active Substance: ATORVASTATIN CALCIUM

REACTIONS (5)
  - Rash [Recovered/Resolved]
  - Nasopharyngitis [Recovered/Resolved]
  - Alopecia [Not Recovered/Not Resolved]
  - Off label use [Unknown]
  - Disease progression [Recovered/Resolved]

NARRATIVE: CASE EVENT DATE: 20171212
